FAERS Safety Report 19764327 (Version 1)
Quarter: 2021Q3

REPORT INFORMATION
  Report Type: Report from Study
  Country: None (occurrence: BE)
  Receive Date: 20210831
  Receipt Date: 20210831
  Transmission Date: 20211014
  Serious: Yes (Other)
  Sender: FDA-Public Use
  Company Number: BE-ABBVIE-21K-013-4058573-00

PATIENT
  Sex: Male
  Weight: 71 kg

DRUGS (8)
  1. DUODOPA [Suspect]
     Active Substance: CARBIDOPA\LEVODOPA
     Dosage: ED 2.5 ML, DURING 16 HRS
     Route: 050
     Dates: start: 20200420, end: 20200525
  2. DUODOPA [Suspect]
     Active Substance: CARBIDOPA\LEVODOPA
     Dosage: MD 11 ML, CD 4.0 ML/H, ED 2.0 ML, DURING 16 HRS
     Route: 050
     Dates: start: 20200213, end: 20200420
  3. DUODOPA [Suspect]
     Active Substance: CARBIDOPA\LEVODOPA
     Dosage: MD 11 ML, CD 3.8 ML/H, ED 2.5 ML, DURING 16 HRS
     Route: 050
     Dates: start: 20200526, end: 20200612
  4. DUODOPA [Suspect]
     Active Substance: CARBIDOPA\LEVODOPA
     Dosage: MD 8.0 ML, CD 3.2 ML/H, ED 2.5 ML, DURING 16 HRS
     Route: 050
     Dates: start: 20200806
  5. DUODOPA [Suspect]
     Active Substance: CARBIDOPA\LEVODOPA
     Dosage: MD 11 ML, CD 3.8 ML/H, ED 2.5 ML, DURING 16 HRS
     Route: 050
     Dates: start: 20200525, end: 20200526
  6. DUODOPA [Suspect]
     Active Substance: CARBIDOPA\LEVODOPA
     Indication: PARKINSON^S DISEASE
     Route: 050
     Dates: start: 20200121, end: 20200213
  7. DUODOPA [Suspect]
     Active Substance: CARBIDOPA\LEVODOPA
     Dosage: MD 11 ML, CD 3.6 ML/H, ED 2.5 ML, DURING 16 HRS
     Route: 050
     Dates: start: 20200612, end: 20200709
  8. DUODOPA [Suspect]
     Active Substance: CARBIDOPA\LEVODOPA
     Dosage: CD 3.4 ML/H, ED 2.0 ML, DURING 16 HRS
     Route: 050
     Dates: start: 20200709, end: 20200806

REACTIONS (2)
  - Hip surgery [Unknown]
  - Gait disturbance [Not Recovered/Not Resolved]
